FAERS Safety Report 18500838 (Version 1)
Quarter: 2020Q4

REPORT INFORMATION
  Report Type: Spontaneous
  Country: US (occurrence: US)
  Receive Date: 20201113
  Receipt Date: 20201113
  Transmission Date: 20210114
  Serious: Yes (Hospitalization, Other)
  Sender: FDA-Public Use
  Company Number: US-SCIEGEN-2020SCILIT00328

PATIENT
  Age: 27 Year
  Sex: Male

DRUGS (2)
  1. METFORMIN HYDROCHLORIDETABLETS [Suspect]
     Active Substance: METFORMIN HYDROCHLORIDE
     Indication: DIABETES MELLITUS
     Route: 065
  2. GLIPIZIDE. [Interacting]
     Active Substance: GLIPIZIDE
     Route: 065

REACTIONS (3)
  - MELAS syndrome [Unknown]
  - Unevaluable event [Unknown]
  - Unmasking of previously unidentified disease [Unknown]
